FAERS Safety Report 6213739-2 (Version None)
Quarter: 2009Q2

REPORT INFORMATION
  Report Type: 
  Country: None (occurrence: None)
  Receive Date: 20090602
  Receipt Date: 20090529
  Transmission Date: 20091009
  Serious: Yes (Death)
  Sender: FDA-Public Use
  Company Number: 1000006541

PATIENT
  Age: 43 Year
  Sex: Male

DRUGS (5)
  1. LEXAPRO [Suspect]
     Indication: ANXIETY
     Dosage: 10 MG, ORAL, 10 MG (10 MG, 1 IN 1 D), ORAL
     Route: 048
     Dates: start: 20090305, end: 20090101
  2. LEXAPRO [Suspect]
     Indication: DEPRESSION
     Dosage: 10 MG, ORAL, 10 MG (10 MG, 1 IN 1 D), ORAL
     Route: 048
     Dates: start: 20090305, end: 20090101
  3. LEXAPRO [Suspect]
     Indication: ANXIETY
     Dosage: 10 MG, ORAL, 10 MG (10 MG, 1 IN 1 D), ORAL
     Route: 048
     Dates: start: 20090503, end: 20090516
  4. LEXAPRO [Suspect]
     Indication: DEPRESSION
     Dosage: 10 MG, ORAL, 10 MG (10 MG, 1 IN 1 D), ORAL
     Route: 048
     Dates: start: 20090503, end: 20090516
  5. TRAZODONE HCL [Concomitant]

REACTIONS (3)
  - COMPLETED SUICIDE [None]
  - THERMAL BURN [None]
  - TREATMENT NONCOMPLIANCE [None]
